FAERS Safety Report 9133137 (Version 2)
Quarter: 2015Q2

REPORT INFORMATION
  Report Type: Spontaneous
  Country: KR (occurrence: KR)
  Receive Date: 20130128
  Receipt Date: 20150421
  Transmission Date: 20150821
  Serious: Yes (Hospitalization, Other)
  Sender: FDA-Public Use
  Company Number: KR-ELI_LILLY_AND_COMPANY-KR201301008799

PATIENT
  Age: 44 Year
  Sex: Male
  Weight: 80 kg

DRUGS (6)
  1. ASPIRIN ANALGESIC [Concomitant]
     Indication: MYOCARDIAL INFARCTION
     Dosage: 300 MG, UNKNOWN
  2. ABCIXIMAB [Suspect]
     Active Substance: ABCIXIMAB
     Indication: PERCUTANEOUS CORONARY INTERVENTION
     Dosage: 20 MG, SINGLE
  3. CLOPIDOGREL [Concomitant]
     Active Substance: CLOPIDOGREL BISULFATE
     Indication: MYOCARDIAL INFARCTION
     Dosage: 600 MG, UNKNOWN
  4. ENOXAPARIN [Concomitant]
     Active Substance: ENOXAPARIN
     Indication: MYOCARDIAL INFARCTION
     Dosage: 60 MG, UNKNOWN
  5. ABCIXIMAB [Suspect]
     Active Substance: ABCIXIMAB
     Dosage: 0.6 MG, EVERY HOUR
     Route: 042
  6. UNFRACTIONATED HEPARIN [Concomitant]
     Active Substance: HEPARIN SODIUM
     Indication: PERCUTANEOUS CORONARY INTERVENTION
     Dosage: 10000 U, SINGLE

REACTIONS (2)
  - Sternal fracture [Recovered/Resolved]
  - Mediastinal haematoma [Recovered/Resolved]
